FAERS Safety Report 9155039 (Version 1)
Quarter: 2013Q1

REPORT INFORMATION
  Report Type: Report from Study
  Country: US (occurrence: US)
  Receive Date: 20130311
  Receipt Date: 20130311
  Transmission Date: 20140127
  Serious: No
  Sender: FDA-Public Use
  Company Number: US-ABBOTT-12P-163-0954192-00

PATIENT
  Age: 19 Year
  Sex: Female

DRUGS (4)
  1. LUPRON DEPOT 11.25 MG [Suspect]
     Indication: ENDOMETRIOSIS
     Dates: start: 20120515
  2. NORETHINDRONE ACETATE [Suspect]
     Indication: PRODUCT USED FOR UNKNOWN INDICATION
     Dosage: 5MG DAILY
  3. CELEXA [Concomitant]
     Indication: DEPRESSION
     Dosage: 40MG DAILY
     Route: 048
  4. CELEXA [Concomitant]
     Indication: ANXIETY

REACTIONS (3)
  - Metrorrhagia [Recovered/Resolved]
  - Muscle spasms [Unknown]
  - Hot flush [Unknown]
